FAERS Safety Report 21157872 (Version 1)
Quarter: 2022Q3

REPORT INFORMATION
  Report Type: Spontaneous
  Country: DK (occurrence: DK)
  Receive Date: 20220801
  Receipt Date: 20220801
  Transmission Date: 20221027
  Serious: Yes (Other)
  Sender: FDA-Public Use
  Company Number: DK-BAXTER-2022BAX016014

PATIENT
  Age: 73 Year
  Sex: Female

DRUGS (2)
  1. BUPIVACAINE [Suspect]
     Active Substance: BUPIVACAINE
     Indication: Preoperative care
     Dosage: DOSAGE: 2-8 ML/HOUR. STRENGTH: 2.5 MG/ML
     Route: 008
     Dates: start: 20220606, end: 20220609
  2. MORPHINE [Suspect]
     Active Substance: MORPHINE
     Indication: Preoperative care
     Dosage: DOSAGE: 2-8 ML/HOUR. STRENGTH: UNKNOWN
     Route: 008
     Dates: start: 20220606, end: 20220609

REACTIONS (1)
  - Delirium [Unknown]

NARRATIVE: CASE EVENT DATE: 20220606
